FAERS Safety Report 19913899 (Version 3)
Quarter: 2021Q4

REPORT INFORMATION
  Report Type: Spontaneous
  Country: US (occurrence: US)
  Receive Date: 20211004
  Receipt Date: 20211015
  Transmission Date: 20220303
  Serious: No
  Sender: FDA-Public Use
  Company Number: US-DSPHARMA-2021SUN003770

PATIENT
  Age: 13 Year
  Sex: Female
  Weight: 49.89 kg

DRUGS (4)
  1. LATUDA [Suspect]
     Active Substance: LURASIDONE HYDROCHLORIDE
     Indication: Mood swings
     Dosage: 20 MG
     Route: 048
     Dates: start: 20181220
  2. LATUDA [Suspect]
     Active Substance: LURASIDONE HYDROCHLORIDE
     Dosage: 40 MG
     Route: 048
  3. INTUNIV [Concomitant]
     Active Substance: GUANFACINE HYDROCHLORIDE
     Dosage: 2 MG
     Dates: start: 2015
  4. DEPLIN [Concomitant]
     Active Substance: LEVOMEFOLATE CALCIUM
     Dosage: 7.5 MG
     Dates: start: 201812

REACTIONS (3)
  - Repetitive speech [Not Recovered/Not Resolved]
  - Dysphemia [Not Recovered/Not Resolved]
  - Off label use [Unknown]

NARRATIVE: CASE EVENT DATE: 20200101
